FAERS Safety Report 4316746-X (Version None)
Quarter: 2004Q1

REPORT INFORMATION
  Report Type: 
  Country: None (occurrence: None)
  Receive Date: 20040311
  Receipt Date: 20040227
  Transmission Date: 20041129
  Serious: Yes (Other)
  Sender: FDA-Public Use
  Company Number: US-JNJFOC-20040206446

PATIENT
  Age: 71 Year
  Sex: Female
  Weight: 74.3899 kg

DRUGS (16)
  1. REMICADE [Suspect]
     Indication: RHEUMATOID ARTHRITIS
     Dosage: 300 MG INTRAVENOUS
     Route: 042
     Dates: start: 20000101
  2. REMICADE [Suspect]
     Indication: RHEUMATOID ARTHRITIS
     Dosage: 300 MG INTRAVENOUS
     Route: 042
     Dates: start: 20040116
  3. ATENOLOL [Concomitant]
  4. LANOXIN [Concomitant]
  5. ALPRAZOLAM [Concomitant]
  6. MESALAZINE (MESALAZINE) [Concomitant]
  7. ADVAIR (SERETIDE MITE) [Concomitant]
  8. KLOR-CON [Concomitant]
  9. HYDROCODONE (HYDROCODONE) [Concomitant]
  10. HYDROCHLOROTHIAZIDE [Concomitant]
  11. ACIPHEX [Concomitant]
  12. PREMPRO 14/14 [Concomitant]
  13. BEXTRA [Concomitant]
  14. FOLIC ACID [Concomitant]
  15. TAMBOCOR [Concomitant]
  16. ALBUTEROL [Concomitant]

REACTIONS (1)
  - SMALL CELL LUNG CANCER STAGE UNSPECIFIED [None]
